APPROVED DRUG PRODUCT: SACUBITRIL AND VALSARTAN
Active Ingredient: SACUBITRIL; VALSARTAN
Strength: 97MG;103MG
Dosage Form/Route: TABLET;ORAL
Application: A213605 | Product #003 | TE Code: AB
Applicant: CRYSTAL PHARMACEUTICAL SUZHOU CO LTD
Approved: May 28, 2024 | RLD: No | RS: No | Type: RX